FAERS Safety Report 9778597 (Version 1)
Quarter: 2013Q4

REPORT INFORMATION
  Report Type: Spontaneous
  Country: US (occurrence: None)
  Receive Date: 20131220
  Receipt Date: 20131220
  Transmission Date: 20140711
  Serious: Yes (Other)
  Sender: FDA-Public Use
  Company Number: None

PATIENT
  Age: 73 Year
  Sex: Male
  Weight: 86.64 kg

DRUGS (16)
  1. SITAGLIPTIN [Suspect]
     Indication: TYPE 2 DIABETES MELLITUS
     Route: 048
  2. JANUVIA [Concomitant]
  3. AMLODIPINE [Concomitant]
  4. GLUCOTROL ER [Concomitant]
  5. GLUCOPHAGE XR [Concomitant]
  6. CLONIDINE [Concomitant]
  7. DIOVAN [Concomitant]
  8. TENORMIN [Concomitant]
  9. LIPITOR [Concomitant]
  10. VITAMIN B12 [Concomitant]
  11. AMBIEN [Concomitant]
  12. ASA [Concomitant]
  13. MVI PEDIATRIC [Concomitant]
  14. VITAMIN D [Concomitant]
  15. TAC CREAM TO LLE [Concomitant]
  16. VIAGRA [Concomitant]

REACTIONS (3)
  - Pancreatitis [None]
  - Pancreatic neoplasm [None]
  - Intraductal papillary mucinous neoplasm [None]
